FAERS Safety Report 6943090-4 (Version None)
Quarter: 2010Q3

REPORT INFORMATION
  Report Type: 
  Country: None (occurrence: None)
  Receive Date: 20100826
  Receipt Date: 20100825
  Transmission Date: 20110219
  Serious: Yes (Hospitalization)
  Sender: FDA-Public Use
  Company Number: GXKR2010DE09498

PATIENT
  Age: 56 Year
  Sex: Female
  Weight: 87 kg

DRUGS (14)
  1. MIRTAZAPINE [Suspect]
     Indication: DEPRESSION
     Dosage: 22.5 MG, QD
     Route: 048
     Dates: start: 20081201
  2. TELMISARTAN AND HYDROCHLOROTHIAZIDE [Suspect]
     Indication: HYPERTENSION
     Dosage: 1 DF, QD
     Route: 048
  3. DELMUNO [Suspect]
     Indication: HYPERTENSION
     Dosage: 1 DF, QD
     Route: 048
     Dates: start: 20060101, end: 20090320
  4. ALLOPURINOL [Concomitant]
     Indication: HYPERURICAEMIA
     Dosage: 300 MG, UNK
     Route: 048
  5. METOHEXAL [Concomitant]
     Indication: HYPERTENSION
     Dosage: 100 MG, BID
     Route: 048
     Dates: start: 20040101
  6. ISCOVER [Concomitant]
     Indication: CEREBROVASCULAR ACCIDENT
     Dosage: 75 MG, QD
     Route: 048
  7. SIMVASTATIN [Concomitant]
     Indication: DYSLIPIDAEMIA
     Dosage: 40 MG, QD
     Route: 048
     Dates: start: 20080601
  8. PANTOPRAZOLE SODIUM [Concomitant]
     Indication: REFLUX OESOPHAGITIS
     Dosage: 40 MG, QD
     Route: 048
     Dates: start: 20080601
  9. SIOFOR [Concomitant]
     Indication: TYPE 2 DIABETES MELLITUS
     Dosage: 500 MG, BID
     Route: 048
     Dates: start: 20081201
  10. DIAZEPAM [Concomitant]
     Indication: DEPRESSION
     Dosage: UNK
     Route: 048
     Dates: start: 20081201
  11. DEPRESSAN [Concomitant]
     Indication: HYPERTENSION
     Dosage: 25 MG, BID
     Route: 048
     Dates: start: 20040101
  12. KEPPRA [Concomitant]
     Indication: PARTIAL SEIZURES
     Dosage: 100 MG, BID
     Route: 048
     Dates: start: 20080601
  13. LORAZEPAM [Concomitant]
     Indication: ANXIETY
     Dosage: 1 MG, QID
     Route: 048
     Dates: start: 20090319
  14. ELMENDOS [Concomitant]
     Indication: PARTIAL SEIZURES
     Dosage: 25 MG, QD
     Route: 048
     Dates: start: 20090319

REACTIONS (1)
  - HYPONATRAEMIA [None]
